FAERS Safety Report 17318376 (Version 2)
Quarter: 2025Q4

REPORT INFORMATION
  Report Type: Spontaneous
  Country: EU (occurrence: EU)
  Receive Date: 20200124
  Receipt Date: 20251006
  Transmission Date: 20260117
  Serious: Yes (Death)
  Sender: MYLAN
  Company Number: EU-ADIENNEP-2019AD000562

PATIENT

DRUGS (40)
  1. BUSULFAN [Suspect]
     Active Substance: BUSULFAN
     Indication: Allogenic stem cell transplantation
     Dosage: 9.6 MILLIGRAM/KILOGRAM
  2. BUSULFAN [Suspect]
     Active Substance: BUSULFAN
     Indication: Haematological malignancy
     Dosage: 9.6 MILLIGRAM/KILOGRAM
     Route: 042
  3. BUSULFAN [Suspect]
     Active Substance: BUSULFAN
     Dosage: 9.6 MILLIGRAM/KILOGRAM
     Route: 042
  4. BUSULFAN [Suspect]
     Active Substance: BUSULFAN
     Dosage: 9.6 MILLIGRAM/KILOGRAM
  5. FLUDARABINE [Suspect]
     Active Substance: FLUDARABINE PHOSPHATE
     Indication: Haematological malignancy
     Dosage: 150 MILLIGRAM/SQ. METER
  6. FLUDARABINE [Suspect]
     Active Substance: FLUDARABINE PHOSPHATE
     Indication: Allogenic stem cell transplantation
     Dosage: 150 MILLIGRAM/SQ. METER
     Route: 065
  7. FLUDARABINE [Suspect]
     Active Substance: FLUDARABINE PHOSPHATE
     Dosage: 150 MILLIGRAM/SQ. METER
     Route: 065
  8. FLUDARABINE [Suspect]
     Active Substance: FLUDARABINE PHOSPHATE
     Dosage: 150 MILLIGRAM/SQ. METER
  9. CYCLOSPORINE [Suspect]
     Active Substance: CYCLOSPORINE
     Indication: Prophylaxis against graft versus host disease
     Dosage: MAINTAIN A LEVEL OF 200 TO 400 NG/ML ON DAYS +5 TO DAY +180
  10. CYCLOSPORINE [Suspect]
     Active Substance: CYCLOSPORINE
     Dosage: MAINTAIN A LEVEL OF 200 TO 400 NG/ML ON DAYS +5 TO DAY +180
     Route: 065
  11. CYCLOSPORINE [Suspect]
     Active Substance: CYCLOSPORINE
     Dosage: MAINTAIN A LEVEL OF 200 TO 400 NG/ML ON DAYS +5 TO DAY +180
     Route: 065
  12. CYCLOSPORINE [Suspect]
     Active Substance: CYCLOSPORINE
     Dosage: MAINTAIN A LEVEL OF 200 TO 400 NG/ML ON DAYS +5 TO DAY +180
  13. MYCOPHENOLATE MOFETIL [Suspect]
     Active Substance: MYCOPHENOLATE MOFETIL
     Indication: Prophylaxis against graft versus host disease
     Dosage: 10 MILLIGRAM/KILOGRAM, Q8H (EVERY 8 HOUR(S
  14. MYCOPHENOLATE MOFETIL [Suspect]
     Active Substance: MYCOPHENOLATE MOFETIL
     Dosage: 10 MILLIGRAM/KILOGRAM, Q8H (EVERY 8 HOUR(S
     Route: 065
  15. MYCOPHENOLATE MOFETIL [Suspect]
     Active Substance: MYCOPHENOLATE MOFETIL
     Dosage: 10 MILLIGRAM/KILOGRAM, Q8H (EVERY 8 HOUR(S
     Route: 065
  16. MYCOPHENOLATE MOFETIL [Suspect]
     Active Substance: MYCOPHENOLATE MOFETIL
     Dosage: 10 MILLIGRAM/KILOGRAM, Q8H (EVERY 8 HOUR(S
  17. THIOTEPA [Suspect]
     Active Substance: THIOTEPA
     Indication: Allogenic stem cell transplantation
     Dosage: 10 MILLIGRAM/KILOGRAM
  18. THIOTEPA [Suspect]
     Active Substance: THIOTEPA
     Indication: Haematological malignancy
     Dosage: 10 MILLIGRAM/KILOGRAM
     Route: 065
  19. THIOTEPA [Suspect]
     Active Substance: THIOTEPA
     Dosage: 10 MILLIGRAM/KILOGRAM
     Route: 065
  20. THIOTEPA [Suspect]
     Active Substance: THIOTEPA
     Dosage: 10 MILLIGRAM/KILOGRAM
  21. CYCLOPHOSPHAMIDE [Suspect]
     Active Substance: CYCLOPHOSPHAMIDE
     Indication: Prophylaxis against graft versus host disease
     Dosage: 50 MILLIGRAM/KILOGRAM, QD (ON DAYS +3 AND +4)
  22. CYCLOPHOSPHAMIDE [Suspect]
     Active Substance: CYCLOPHOSPHAMIDE
     Dosage: 50 MILLIGRAM/KILOGRAM, QD (ON DAYS +3 AND +4)
     Route: 042
  23. CYCLOPHOSPHAMIDE [Suspect]
     Active Substance: CYCLOPHOSPHAMIDE
     Dosage: 50 MILLIGRAM/KILOGRAM, QD (ON DAYS +3 AND +4)
     Route: 042
  24. CYCLOPHOSPHAMIDE [Suspect]
     Active Substance: CYCLOPHOSPHAMIDE
     Dosage: 50 MILLIGRAM/KILOGRAM, QD (ON DAYS +3 AND +4)
  25. GRANULOCYTE COLONY-STIMULATING FACTOR NOS [Concomitant]
     Active Substance: GRANULOCYTE COLONY-STIMULATING FACTOR NOS
     Dosage: 5 MICROGRAM/KILOGRAM, QD (ON DAY +7)
  26. GRANULOCYTE COLONY-STIMULATING FACTOR NOS [Concomitant]
     Active Substance: GRANULOCYTE COLONY-STIMULATING FACTOR NOS
     Dosage: 5 MICROGRAM/KILOGRAM, QD (ON DAY +7)
     Route: 065
  27. GRANULOCYTE COLONY-STIMULATING FACTOR NOS [Concomitant]
     Active Substance: GRANULOCYTE COLONY-STIMULATING FACTOR NOS
     Dosage: 5 MICROGRAM/KILOGRAM, QD (ON DAY +7)
     Route: 065
  28. GRANULOCYTE COLONY-STIMULATING FACTOR NOS [Concomitant]
     Active Substance: GRANULOCYTE COLONY-STIMULATING FACTOR NOS
     Dosage: 5 MICROGRAM/KILOGRAM, QD (ON DAY +7)
  29. ACYCLOVIR [Concomitant]
     Active Substance: ACYCLOVIR
     Dosage: 500 MILLIGRAM/SQ. METER, Q8H
  30. ACYCLOVIR [Concomitant]
     Active Substance: ACYCLOVIR
     Dosage: 500 MILLIGRAM/SQ. METER, Q8H
     Route: 042
  31. ACYCLOVIR [Concomitant]
     Active Substance: ACYCLOVIR
     Dosage: 500 MILLIGRAM/SQ. METER, Q8H
     Route: 042
  32. ACYCLOVIR [Concomitant]
     Active Substance: ACYCLOVIR
     Dosage: 500 MILLIGRAM/SQ. METER, Q8H
  33. COTRIMOXAZOLE [Concomitant]
     Active Substance: SULFAMETHOXAZOLE\TRIMETHOPRIM
     Dosage: UNK (FROM DAY -8 THROUGH DAY -2)
  34. COTRIMOXAZOLE [Concomitant]
     Active Substance: SULFAMETHOXAZOLE\TRIMETHOPRIM
     Dosage: UNK (FROM DAY -8 THROUGH DAY -2)
  35. COTRIMOXAZOLE [Concomitant]
     Active Substance: SULFAMETHOXAZOLE\TRIMETHOPRIM
     Dosage: UNK (FROM DAY -8 THROUGH DAY -2)
     Route: 065
  36. COTRIMOXAZOLE [Concomitant]
     Active Substance: SULFAMETHOXAZOLE\TRIMETHOPRIM
     Dosage: UNK (FROM DAY -8 THROUGH DAY -2)
     Route: 065
  37. COTRIMOXAZOLE [Concomitant]
     Active Substance: SULFAMETHOXAZOLE\TRIMETHOPRIM
     Dosage: UNK (RESUMED AT THE TIME OF ENGRAFTMENT)
  38. COTRIMOXAZOLE [Concomitant]
     Active Substance: SULFAMETHOXAZOLE\TRIMETHOPRIM
     Dosage: UNK (RESUMED AT THE TIME OF ENGRAFTMENT)
  39. COTRIMOXAZOLE [Concomitant]
     Active Substance: SULFAMETHOXAZOLE\TRIMETHOPRIM
     Dosage: UNK (RESUMED AT THE TIME OF ENGRAFTMENT)
     Route: 065
  40. COTRIMOXAZOLE [Concomitant]
     Active Substance: SULFAMETHOXAZOLE\TRIMETHOPRIM
     Dosage: UNK (RESUMED AT THE TIME OF ENGRAFTMENT)
     Route: 065

REACTIONS (2)
  - Adenovirus infection [Fatal]
  - Respiratory syncytial virus infection [Fatal]
